FAERS Safety Report 9922088 (Version 1)
Quarter: 2014Q1

REPORT INFORMATION
  Report Type: Not Available
  Country: None (occurrence: US)
  Receive Date: 20140225
  Receipt Date: 20140225
  Transmission Date: 20141002
  Serious: Yes (Hospitalization)
  Sender: FDA-Public Use
  Company Number: US-BAXTER-2011BH018026

PATIENT
  Age: 4 Year
  Sex: Male
  Weight: 16.7 kg

DRUGS (6)
  1. FEIBA : FEIBA_NANOFILTRATION_1000 UNITS/VIAL_POWDER FOR SOLUTION FOR I [Suspect]
     Indication: HAEMORRHAGE
     Route: 042
     Dates: start: 20100105
  2. FEIBA : FEIBA_NANOFILTRATION_1000 UNITS/VIAL_POWDER FOR SOLUTION FOR I [Suspect]
     Indication: PROPHYLAXIS
     Route: 042
     Dates: start: 20100111, end: 20101008
  3. FEIBA : FEIBA_NANOFILTRATION_1000 UNITS/VIAL_POWDER FOR SOLUTION FOR I [Suspect]
     Route: 042
     Dates: start: 20101008, end: 20110210
  4. NOVOSEVEN [Suspect]
     Indication: PROPHYLAXIS
     Route: 042
     Dates: start: 200805
  5. NOVOSEVEN [Suspect]
     Indication: HAEMORRHAGE
  6. ANTIHEMOPHILIC FACTOR [Concomitant]
     Indication: PRODUCT USED FOR UNKNOWN INDICATION
     Route: 042
     Dates: start: 20101224

REACTIONS (1)
  - Venous thrombosis limb [Recovered/Resolved]
